FAERS Safety Report 5632112-9 (Version None)
Quarter: 2008Q1

REPORT INFORMATION
  Report Type: 
  Country: None (occurrence: None)
  Receive Date: 20080220
  Receipt Date: 20080218
  Transmission Date: 20080703
  Serious: Yes (Death, Hospitalization)
  Sender: FDA-Public Use
  Company Number: B0508765A

PATIENT
  Age: 74 Year
  Sex: Female
  Weight: 100 kg

DRUGS (5)
  1. LAMICTAL [Suspect]
     Indication: EPILEPSY
     Route: 048
     Dates: start: 20080108, end: 20080129
  2. METHOTREXATE [Concomitant]
     Indication: RHEUMATOID ARTHRITIS
     Dosage: 12.5MG WEEKLY
     Route: 065
  3. CORTANCYL [Concomitant]
     Indication: DRUG USE FOR UNKNOWN INDICATION
     Dosage: 5MG PER DAY
     Route: 065
  4. GARDENAL [Concomitant]
     Indication: DRUG USE FOR UNKNOWN INDICATION
     Dosage: 50MG THREE TIMES PER DAY
     Route: 065
  5. TRIVASTAL [Concomitant]
     Indication: DRUG USE FOR UNKNOWN INDICATION
     Route: 065

REACTIONS (9)
  - ALTERED STATE OF CONSCIOUSNESS [None]
  - CHOLESTASIS [None]
  - CONFUSIONAL STATE [None]
  - FATIGUE [None]
  - GENERAL PHYSICAL HEALTH DETERIORATION [None]
  - HEPATIC ENCEPHALOPATHY [None]
  - HEPATIC ENZYME INCREASED [None]
  - HEPATITIS FULMINANT [None]
  - PROTHROMBIN TIME PROLONGED [None]
